FAERS Safety Report 7239101-1 (Version None)
Quarter: 2011Q1

REPORT INFORMATION
  Report Type: 
  Country: None (occurrence: None)
  Receive Date: 20110121
  Receipt Date: 20110120
  Transmission Date: 20110831
  Serious: Yes (Other)
  Sender: FDA-Public Use
  Company Number: ES-AMGEN-ESPSP2010005621

PATIENT

DRUGS (5)
  1. ATORVASTATIN CALCIUM [Concomitant]
     Dosage: UNK UNK, QD
     Route: 048
  2. ENEAS [Concomitant]
     Route: 048
  3. NPLATE [Suspect]
     Dosage: 10 A?G/KG, QWK
     Route: 058
     Dates: start: 20091223
  4. TRANXILIUM [Concomitant]
     Dosage: UNK UNK, QD
     Route: 048
  5. OMEPRAZOL                          /00661201/ [Concomitant]
     Dosage: UNK UNK, QD`
     Route: 048

REACTIONS (2)
  - VARICELLA [None]
  - PLATELET COUNT DECREASED [None]
